FAERS Safety Report 17007988 (Version 3)
Quarter: 2020Q1

REPORT INFORMATION
  Report Type: Report from Study
  Country: CA (occurrence: CA)
  Receive Date: 20191108
  Receipt Date: 20200131
  Transmission Date: 20200409
  Serious: Yes (Other)
  Sender: FDA-Public Use
  Company Number: CA-ORION CORPORATION ORION PHARMA-TREX2019-5225

PATIENT
  Age: 69 Year
  Sex: Female

DRUGS (6)
  1. METHOTREXATE (TRADE NAME UNKNOWN) [Suspect]
     Active Substance: METHOTREXATE
     Indication: PRODUCT USED FOR UNKNOWN INDICATION
     Route: 065
     Dates: start: 201211, end: 201303
  2. SIMPONI [Concomitant]
     Active Substance: GOLIMUMAB
     Route: 058
     Dates: start: 201202, end: 201305
  3. METOPROLOL. [Concomitant]
     Active Substance: METOPROLOL
     Route: 048
  4. ESOMEPRAZOLE SODIUM. [Concomitant]
     Active Substance: ESOMEPRAZOLE SODIUM
     Route: 065
  5. MICARDIS [Concomitant]
     Active Substance: TELMISARTAN
     Route: 065
  6. CELEBREX [Concomitant]
     Active Substance: CELECOXIB
     Route: 065
     Dates: start: 2001

REACTIONS (1)
  - Headache [Unknown]
